FAERS Safety Report 4804957-6 (Version None)
Quarter: 2005Q4

REPORT INFORMATION
  Report Type: 
  Country: None (occurrence: None)
  Receive Date: 20051017
  Receipt Date: 20051007
  Transmission Date: 20060501
  Serious: Yes (Hospitalization)
  Sender: FDA-Public Use
  Company Number: 2005-10-0301

PATIENT
  Age: 71 Year
  Sex: Male

DRUGS (2)
  1. TEMODAL [Suspect]
     Indication: GLIOBLASTOMA
     Dosage: 75 MG/ M^2 ORAL
     Route: 048
  2. RADIATION THERAPY [Concomitant]

REACTIONS (5)
  - ANAEMIA [None]
  - APLASIA [None]
  - NERVOUS SYSTEM DISORDER [None]
  - NEUTROPENIA [None]
  - THROMBOCYTOPENIA [None]
